FAERS Safety Report 6526404-9 (Version None)
Quarter: 2010Q1

REPORT INFORMATION
  Report Type: 
  Country: None (occurrence: None)
  Receive Date: 20100105
  Receipt Date: 20091216
  Transmission Date: 20100710
  Serious: No
  Sender: FDA-Public Use
  Company Number: US-B.I. PHARMACEUTICALS,INC./RIDGEFIELD-2006-BP-09752BP

PATIENT
  Sex: Female

DRUGS (6)
  1. SPIRIVA [Suspect]
     Indication: CHRONIC OBSTRUCTIVE PULMONARY DISEASE
     Dosage: 18 MCG
     Route: 055
     Dates: start: 20060701
  2. NORVASC [Concomitant]
     Dosage: 10 MG
     Route: 048
  3. LISINOPRIL [Concomitant]
     Dosage: 40 MG
     Route: 048
  4. TOPROL-XL [Concomitant]
     Dosage: 150 MG
     Route: 048
  5. ASPIRIN [Concomitant]
     Route: 048
  6. TRAVATAN [Concomitant]
     Indication: CATARACT

REACTIONS (2)
  - ABNORMAL SENSATION IN EYE [None]
  - COUGH [None]
